FAERS Safety Report 24947941 (Version 1)
Quarter: 2025Q1

REPORT INFORMATION
  Report Type: Spontaneous
  Country: CN (occurrence: CN)
  Receive Date: 20250210
  Receipt Date: 20250210
  Transmission Date: 20250408
  Serious: Yes (Life-Threatening, Other)
  Sender: ALKEM
  Company Number: CN-ALKEM LABORATORIES LIMITED-CN-ALKEM-2025-01052

PATIENT
  Age: 72 Year
  Sex: Male

DRUGS (2)
  1. LIDOCAINE [Suspect]
     Active Substance: LIDOCAINE
     Indication: Local anaesthesia
     Route: 065
  2. TETANUS ANTITOXIN [Concomitant]
     Active Substance: TETANUS ANTITOXIN
     Indication: Wound
     Route: 065

REACTIONS (1)
  - Anaphylactic shock [Recovered/Resolved]
